FAERS Safety Report 14140835 (Version 3)
Quarter: 2018Q1

REPORT INFORMATION
  Report Type: Spontaneous
  Country: US (occurrence: US)
  Receive Date: 20171030
  Receipt Date: 20180105
  Transmission Date: 20180508
  Serious: Yes (Hospitalization, Other)
  Sender: FDA-Public Use
  Company Number: US-BRISTOL-MYERS SQUIBB COMPANY-BMS-2017-094070

PATIENT
  Sex: Male
  Weight: 99.79 kg

DRUGS (1)
  1. YERVOY [Suspect]
     Active Substance: IPILIMUMAB
     Indication: MALIGNANT MELANOMA
     Dosage: 1025 MG, Q3WK
     Route: 042
     Dates: start: 201709

REACTIONS (2)
  - Sepsis [Unknown]
  - Pneumonia [Unknown]
